FAERS Safety Report 18283691 (Version 1)
Quarter: 2020Q3

REPORT INFORMATION
  Report Type: Spontaneous
  Country: US (occurrence: US)
  Receive Date: 20200918
  Receipt Date: 20200918
  Transmission Date: 20201103
  Serious: Yes (Other)
  Sender: FDA-Public Use
  Company Number: US-PURDUE-USA-2020-0166593

PATIENT
  Sex: Male

DRUGS (6)
  1. HYDROCODONE BITARTRATE (SIMILAR TO NDA 206627) [Suspect]
     Active Substance: HYDROCODONE BITARTRATE
     Indication: PRODUCT USED FOR UNKNOWN INDICATION
     Dosage: UNK
     Route: 048
  2. OXYCODONE HYDROCHLORIDE (SIMILAR TO NDA 22?272) [Suspect]
     Active Substance: OXYCODONE HYDROCHLORIDE
     Indication: PRODUCT USED FOR UNKNOWN INDICATION
     Dosage: UNK
     Route: 048
  3. CODEINE [Suspect]
     Active Substance: CODEINE
     Indication: PRODUCT USED FOR UNKNOWN INDICATION
     Dosage: UNK
     Route: 065
  4. OXYCONTIN [Suspect]
     Active Substance: OXYCODONE HYDROCHLORIDE
     Dosage: 10 UNK, UNK
     Route: 048
  5. OXYCONTIN [Suspect]
     Active Substance: OXYCODONE HYDROCHLORIDE
     Indication: PROCEDURAL PAIN
     Dosage: 10 MG, UNK
     Route: 048
  6. PERCOCET                           /00446701/ [Suspect]
     Active Substance: ACETAMINOPHEN\OXYCODONE HYDROCHLORIDE\OXYCODONE TEREPHTHALATE
     Indication: PRODUCT USED FOR UNKNOWN INDICATION
     Dosage: UNK
     Route: 065

REACTIONS (8)
  - Drug abuse [Unknown]
  - Unevaluable event [Unknown]
  - Drug dependence [Unknown]
  - Post-traumatic stress disorder [Unknown]
  - Euphoric mood [Unknown]
  - Deep vein thrombosis [Unknown]
  - Overdose [Unknown]
  - Unemployment [Unknown]

NARRATIVE: CASE EVENT DATE: 200411
